FAERS Safety Report 14577258 (Version 1)
Quarter: 2018Q1

REPORT INFORMATION
  Report Type: Spontaneous
  Country: US (occurrence: US)
  Receive Date: 20180227
  Receipt Date: 20180227
  Transmission Date: 20180509
  Serious: Yes (Other)
  Sender: FDA-Public Use
  Company Number: US-BAYER-2018-036459

PATIENT
  Age: 25 Year
  Sex: Female

DRUGS (2)
  1. MIRENA [Suspect]
     Active Substance: LEVONORGESTREL
     Indication: CONTRACEPTION
     Dosage: 20 MCG/24HR, CONT
     Route: 015
     Dates: start: 201507
  2. MIRENA [Suspect]
     Active Substance: LEVONORGESTREL
     Indication: CONTRACEPTION

REACTIONS (7)
  - Acne [Unknown]
  - Genital haemorrhage [Unknown]
  - Abdominal distension [Unknown]
  - Hypomenorrhoea [Unknown]
  - Weight increased [Unknown]
  - Abdominal pain lower [Unknown]
  - Device use issue [Unknown]

NARRATIVE: CASE EVENT DATE: 201507
